FAERS Safety Report 7977321-9 (Version None)
Quarter: 2011Q4

REPORT INFORMATION
  Report Type: 
  Country: None (occurrence: None)
  Receive Date: 20111213
  Receipt Date: 20111109
  Transmission Date: 20120403
  Serious: No
  Sender: FDA-Public Use
  Company Number: US-AMGEN-USASP2011044281

PATIENT
  Sex: Female

DRUGS (4)
  1. ENBREL [Suspect]
     Indication: RHEUMATOID ARTHRITIS
     Dosage: 50 MG, QWK
     Dates: start: 20110301
  2. ENBREL [Suspect]
     Dosage: 50 MG, QWK
     Dates: start: 20110301
  3. PROCRIT                            /00909301/ [Concomitant]
  4. METHOTREXATE [Concomitant]
     Dosage: UNK

REACTIONS (1)
  - RED BLOOD CELL COUNT DECREASED [None]
